FAERS Safety Report 11771209 (Version 1)
Quarter: 2015Q4

REPORT INFORMATION
  Report Type: Spontaneous
  Country: US (occurrence: US)
  Receive Date: 20151124
  Receipt Date: 20151124
  Transmission Date: 20160304
  Serious: Yes (Other)
  Sender: FDA-Public Use
  Company Number: US-THE MEDICINES COMPANY-US-MDCO-15-00488

PATIENT
  Age: 53 Year

DRUGS (3)
  1. ARGATROBAN. [Suspect]
     Active Substance: ARGATROBAN
     Indication: HEPARIN-INDUCED THROMBOCYTOPENIA
  2. HEPARIN [Concomitant]
     Active Substance: HEPARIN SODIUM
     Indication: ANTICOAGULANT THERAPY
     Dosage: NOT REPORTED
  3. ARGATROBAN. [Suspect]
     Active Substance: ARGATROBAN
     Indication: ANTICOAGULANT THERAPY
     Dosage: NOT REPORTED

REACTIONS (7)
  - Ischaemic hepatitis [Unknown]
  - Heparin-induced thrombocytopenia [None]
  - Activated partial thromboplastin time abnormal [Unknown]
  - Drug clearance decreased [Unknown]
  - Cardiogenic shock [Unknown]
  - Peripheral artery thrombosis [None]
  - Procedural complication [None]
